FAERS Safety Report 24210673 (Version 1)
Quarter: 2024Q3

REPORT INFORMATION
  Report Type: Spontaneous
  Country: MY (occurrence: MY)
  Receive Date: 20240814
  Receipt Date: 20240814
  Transmission Date: 20241017
  Serious: Yes (Other)
  Sender: GLAXOSMITHKLINE
  Company Number: MY-GLAXOSMITHKLINE-MY2024APC100142

PATIENT

DRUGS (1)
  1. BENLYSTA [Suspect]
     Active Substance: BELIMUMAB
     Indication: Systemic lupus erythematosus
     Dosage: 10 MG/KG 120 MG,VIAL
     Route: 042

REACTIONS (4)
  - Suicidal ideation [Recovered/Resolved]
  - Self-destructive behaviour [Unknown]
  - Psychiatric symptom [Recovered/Resolved]
  - Mental disorder [Unknown]
